FAERS Safety Report 10506000 (Version 1)
Quarter: 2014Q4

REPORT INFORMATION
  Report Type: Spontaneous
  Country: NL (occurrence: NL)
  Receive Date: 20141008
  Receipt Date: 20141008
  Transmission Date: 20150528
  Serious: Yes (Death)
  Sender: FDA-Public Use
  Company Number: NL-BAXTER-2014BAX059009

PATIENT
  Age: 77 Year
  Sex: Male

DRUGS (6)
  1. METRONIDAZOL 5 MG/ML IN VIAFLO, OPLOSSING VOOR INTRAVEINEUZE INFUSIE [Suspect]
     Active Substance: METRONIDAZOLE
     Indication: BRAIN ABSCESS
     Route: 042
  2. CLARITHROMYCIN. [Suspect]
     Active Substance: CLARITHROMYCIN
     Indication: BRAIN ABSCESS
     Route: 048
  3. VANCOMYCIN [Suspect]
     Active Substance: VANCOMYCIN
     Indication: BRAIN ABSCESS
     Route: 042
  4. AMOXICILLIN. [Suspect]
     Active Substance: AMOXICILLIN
     Indication: BRAIN ABSCESS
     Route: 042
  5. PENICILLIN [Suspect]
     Active Substance: PENICILLIN
     Indication: BRAIN ABSCESS
     Dosage: 12 MILLION UNITS
     Route: 042
  6. CEFTRIAXONE. [Suspect]
     Active Substance: CEFTRIAXONE
     Indication: BRAIN ABSCESS
     Route: 042

REACTIONS (7)
  - Drug reaction with eosinophilia and systemic symptoms [Fatal]
  - Organ failure [None]
  - Drug reaction with eosinophilia and systemic symptoms [None]
  - Respiratory failure [None]
  - Haemofiltration [None]
  - Acute kidney injury [None]
  - Disorientation [None]
